FAERS Safety Report 13785411 (Version 1)
Quarter: 2017Q3

REPORT INFORMATION
  Report Type: Spontaneous
  Country: US (occurrence: US)
  Receive Date: 20170724
  Receipt Date: 20170724
  Transmission Date: 20171127
  Serious: Yes (Hospitalization, Disabling)
  Sender: FDA-Public Use
  Company Number: None

PATIENT
  Age: 62 Year
  Sex: Female

DRUGS (4)
  1. BYDUREON [Suspect]
     Active Substance: EXENATIDE
     Indication: BLOOD GLUCOSE INCREASED
     Dosage: ?          QUANTITY:4 INJECTION(S);?
  2. LISINOPRIL. [Concomitant]
     Active Substance: LISINOPRIL
  3. NOVOLOG [Concomitant]
     Active Substance: INSULIN ASPART
  4. ATORVASTATIN [Concomitant]
     Active Substance: ATORVASTATIN

REACTIONS (3)
  - Pancreatitis [None]
  - Abdominal pain upper [None]
  - Weight decreased [None]

NARRATIVE: CASE EVENT DATE: 20170714
